FAERS Safety Report 6076621-X (Version None)
Quarter: 2009Q1

REPORT INFORMATION
  Report Type: 
  Country: None (occurrence: None)
  Receive Date: 20090213
  Receipt Date: 20081204
  Transmission Date: 20090719
  Serious: Yes (Other)
  Sender: FDA-Public Use
  Company Number: US-BRISTOL-MYERS SQUIBB COMPANY-14431340

PATIENT
  Age: 45 Year
  Sex: Female
  Weight: 70 kg

DRUGS (5)
  1. IXABEPILONE [Suspect]
     Indication: BREAST CANCER METASTATIC
     Dosage: 40 MG/M2
     Route: 042
     Dates: start: 20081010, end: 20081010
  2. DOXIL [Suspect]
     Indication: BREAST CANCER METASTATIC
     Dosage: 79MG FROM 25APR08-23MAY08,DECREASED TO 55MG ONCE EVRY 4 WKS(6CYCLES)FROM 20JUN08-12SEP08
     Route: 042
     Dates: start: 20080425, end: 20080523
  3. VICODIN [Concomitant]
     Indication: PAIN
     Route: 065
  4. VALTREX [Concomitant]
     Indication: PAIN
     Route: 065
     Dates: start: 20080801
  5. HYDROCODONE BITARTRATE [Concomitant]
     Indication: PAIN

REACTIONS (1)
  - PALMAR-PLANTAR ERYTHRODYSAESTHESIA SYNDROME [None]
